FAERS Safety Report 4831112-6 (Version None)
Quarter: 2005Q4

REPORT INFORMATION
  Report Type: 
  Country: None (occurrence: None)
  Receive Date: 20051114
  Receipt Date: 20051102
  Transmission Date: 20060501
  Serious: Yes (Hospitalization)
  Sender: FDA-Public Use
  Company Number: 2005-11-0034

PATIENT
  Age: 85 Year
  Sex: Male

DRUGS (8)
  1. CLARINEX [Suspect]
     Dosage: ORAL
     Route: 048
     Dates: end: 20051004
  2. DOMPERIDONE [Suspect]
     Dosage: 3 QD ORAL
     Route: 048
     Dates: end: 20051004
  3. FUROSEMIDE [Suspect]
     Dosage: 20 MG QD ORAL
     Route: 048
     Dates: end: 20051002
  4. OMEPRAZOLE [Suspect]
     Dosage: 20 MG QD ORAL
     Route: 048
     Dates: end: 20051002
  5. CIPRALEX (ESCITALOPRAM OXALATE) [Suspect]
     Dosage: 10 MG QD ORAL
     Route: 048
     Dates: end: 20051002
  6. TAMSULOSIN HYDROCHLORIDE CAPSULES [Suspect]
     Dosage: 0.4 MG QD ORAL
     Route: 048
     Dates: end: 20051002
  7. COVERSYL [Concomitant]
  8. ZOPICLONE [Concomitant]

REACTIONS (1)
  - HYPONATRAEMIA [None]
